FAERS Safety Report 21723258 (Version 2)
Quarter: 2023Q2

REPORT INFORMATION
  Report Type: Spontaneous
  Country: IT (occurrence: IT)
  Receive Date: 20221213
  Receipt Date: 20230408
  Transmission Date: 20230722
  Serious: Yes (Death, Other)
  Sender: FDA-Public Use
  Company Number: IT-AMGEN-ITASP2022213002

PATIENT
  Age: 17 Year
  Sex: Male

DRUGS (1)
  1. BLINCYTO [Suspect]
     Active Substance: BLINATUMOMAB
     Indication: Acute lymphocytic leukaemia
     Dosage: 28 MICROGRAM, QD
     Route: 065

REACTIONS (6)
  - Death [Fatal]
  - Acute lymphocytic leukaemia [Recovered/Resolved]
  - Graft versus host disease in liver [Unknown]
  - Therapy non-responder [Unknown]
  - Minimal residual disease [Recovered/Resolved]
  - Central nervous system leukaemia [Recovered/Resolved]
